FAERS Safety Report 4627446-0 (Version None)
Quarter: 2005Q1

REPORT INFORMATION
  Report Type: 
  Country: None (occurrence: None)
  Receive Date: 20050331
  Receipt Date: 20050318
  Transmission Date: 20050727
  Serious: Yes (Other)
  Sender: FDA-Public Use
  Company Number: 2005047763

PATIENT
  Sex: Male

DRUGS (2)
  1. PHENYTOIN [Suspect]
     Indication: CONVULSION
     Dosage: 400 MG (100 MG, 1 IN 1 D), ORAL
     Route: 048
     Dates: start: 20041201
  2. CLOXAZOLAM (CLOXAZOLAM) [Concomitant]

REACTIONS (6)
  - BLISTER [None]
  - DIZZINESS [None]
  - INTENTIONAL MISUSE [None]
  - NAUSEA [None]
  - POISONING [None]
  - VOMITING [None]
